FAERS Safety Report 17599348 (Version 1)
Quarter: 2020Q1

REPORT INFORMATION
  Report Type: Report from Study
  Country: CO (occurrence: CO)
  Receive Date: 20200330
  Receipt Date: 20200330
  Transmission Date: 20200409
  Serious: Yes (Hospitalization)
  Sender: FDA-Public Use
  Company Number: CO-ROCHE-2526411

PATIENT
  Sex: Male

DRUGS (1)
  1. TOCILIZUMAB. [Suspect]
     Active Substance: TOCILIZUMAB
     Indication: PRODUCT USED FOR UNKNOWN INDICATION
     Route: 065

REACTIONS (12)
  - Cough [Unknown]
  - Cardiac disorder [Unknown]
  - Vascular pain [Unknown]
  - Malaise [Unknown]
  - Burning sensation [Unknown]
  - Contusion [Unknown]
  - Influenza [Unknown]
  - Heart rate abnormal [Unknown]
  - Chest pain [Unknown]
  - Immunodeficiency [Unknown]
  - Vasodilatation [Unknown]
  - Syncope [Unknown]
